FAERS Safety Report 9990215 (Version 1)
Quarter: 2014Q1

REPORT INFORMATION
  Report Type: Report from Study
  Country: US (occurrence: US)
  Receive Date: 20140310
  Receipt Date: 20140310
  Transmission Date: 20141002
  Serious: No
  Sender: FDA-Public Use
  Company Number: US-ABBVIE-13P-163-1136977-00

PATIENT
  Age: 47 Year
  Sex: Male

DRUGS (10)
  1. HUMIRA [Suspect]
     Indication: CROHN^S DISEASE
     Dates: start: 20130530
  2. BENAZEPRIL [Concomitant]
     Indication: CARDIAC DISORDER
  3. SIMVASTATIN [Concomitant]
     Indication: BLOOD CHOLESTEROL INCREASED
  4. BELLADONNA [Concomitant]
     Indication: CROHN^S DISEASE
  5. ALPRAZOLAM [Concomitant]
     Indication: INSOMNIA
     Dosage: 1/2MG AT BEDTIME
  6. ALPRAZOLAM [Concomitant]
     Indication: RESTLESSNESS
  7. PRILOSEC [Concomitant]
     Indication: GASTROOESOPHAGEAL REFLUX DISEASE
  8. FISH OIL [Concomitant]
     Indication: PRODUCT USED FOR UNKNOWN INDICATION
  9. VITAMIN D [Concomitant]
     Indication: PRODUCT USED FOR UNKNOWN INDICATION
  10. PROBIOTICS [Concomitant]
     Indication: PRODUCT USED FOR UNKNOWN INDICATION

REACTIONS (4)
  - Gingival bleeding [Not Recovered/Not Resolved]
  - Increased tendency to bruise [Unknown]
  - Injection site bruising [Unknown]
  - Contusion [Unknown]
